FAERS Safety Report 6384958-X (Version None)
Quarter: 2009Q4

REPORT INFORMATION
  Report Type: 
  Country: None (occurrence: None)
  Receive Date: 20091002
  Receipt Date: 20090925
  Transmission Date: 20100525
  Serious: Yes (Other)
  Sender: FDA-Public Use
  Company Number: FR-B.I. PHARMACEUTICALS,INC./RIDGEFIELD-2009-FF-00601FF

PATIENT
  Sex: Male
  Weight: 79 kg

DRUGS (6)
  1. SIFROL [Suspect]
     Indication: RESTLESS LEGS SYNDROME
     Route: 048
  2. SIFROL [Suspect]
     Dosage: 0.7 MG
     Route: 048
     Dates: start: 20090801
  3. AMBROXOL [Concomitant]
  4. SPIRIVA [Concomitant]
  5. SYMBICORT [Concomitant]
     Dosage: 400/12MCG
  6. LYRICA [Concomitant]

REACTIONS (1)
  - ACOUSTIC NEUROMA [None]
